FAERS Safety Report 9513923 (Version 3)
Quarter: 2013Q4

REPORT INFORMATION
  Report Type: Spontaneous
  Country: US (occurrence: US)
  Receive Date: 20130910
  Receipt Date: 20131101
  Transmission Date: 20140711
  Serious: Yes (Hospitalization, Other)
  Sender: FDA-Public Use
  Company Number: US-009507513-1309USA002173

PATIENT
  Age: 64 Year
  Sex: Male
  Weight: 198.8 kg

DRUGS (5)
  1. PEGINTRON [Suspect]
     Indication: HEPATITIS C
     Dosage: 150 MICROGRAM, QW, REDIPEN
     Route: 058
     Dates: start: 20130821, end: 20130828
  2. REBETOL [Suspect]
     Indication: HEPATITIS C
     Dosage: 600 MG, BID
     Route: 048
     Dates: start: 20130821, end: 20130828
  3. MIRALAX [Concomitant]
     Indication: CONSTIPATION
     Dosage: 1 CAPSULE, DAILY
     Route: 048
  4. METHADONE HYDROCHLORIDE [Concomitant]
     Indication: DRUG DEPENDENCE
     Dosage: 32MG, DAILY
     Route: 048
  5. TRAZODONE HYDROCHLORIDE [Concomitant]
     Indication: INSOMNIA
     Dosage: 50 MG, DAILY
     Route: 048

REACTIONS (8)
  - Haematemesis [Recovered/Resolved]
  - Urinary retention [Recovered/Resolved]
  - Vomiting [Recovered/Resolved]
  - Nausea [Recovered/Resolved]
  - Hallucination [Unknown]
  - Pyrexia [Unknown]
  - Insomnia [Unknown]
  - Catheter placement [Unknown]
